FAERS Safety Report 4546455-3 (Version None)
Quarter: 2005Q1

REPORT INFORMATION
  Report Type: 
  Country: None (occurrence: None)
  Receive Date: 20050105
  Receipt Date: 20041221
  Transmission Date: 20050727
  Serious: Yes (Death, Hospitalization)
  Sender: FDA-Public Use
  Company Number: 2004AL000605

PATIENT
  Age: 26 Year
  Sex: Female

DRUGS (3)
  1. ACETAMINOPHEN [Suspect]
     Dosage: PO
     Route: 048
  2. ACETAMINOPHEN [Suspect]
     Dosage: PO
     Route: 048
  3. CARISOPRODOL [Suspect]
     Dosage: PO
     Route: 048

REACTIONS (17)
  - ABDOMINAL PAIN [None]
  - ALANINE AMINOTRANSFERASE INCREASED [None]
  - ASPARTATE AMINOTRANSFERASE INCREASED [None]
  - BLOOD BILIRUBIN INCREASED [None]
  - BLOOD PH DECREASED [None]
  - BRAIN OEDEMA [None]
  - COMA [None]
  - COMPLETED SUICIDE [None]
  - CONFUSIONAL STATE [None]
  - HYPOTENSION [None]
  - INTENTIONAL MISUSE [None]
  - INTERNATIONAL NORMALISED RATIO INCREASED [None]
  - OLIGURIA [None]
  - PCO2 DECREASED [None]
  - SUICIDAL IDEATION [None]
  - THERAPY NON-RESPONDER [None]
  - TRANSAMINASES INCREASED [None]
